FAERS Safety Report 16226341 (Version 1)
Quarter: 2019Q2

REPORT INFORMATION
  Report Type: Spontaneous
  Country: FR (occurrence: FR)
  Receive Date: 20190423
  Receipt Date: 20190423
  Transmission Date: 20190711
  Serious: No
  Sender: FDA-Public Use
  Company Number: FR-ALKEM LABORATORIES LIMITED-FR-ALKEM-2019-01541

PATIENT
  Age: 38 Year
  Sex: Male

DRUGS (1)
  1. MINOCYCLINE [Suspect]
     Active Substance: MINOCYCLINE\MINOCYCLINE HYDROCHLORIDE
     Indication: CEREBRAL TOXOPLASMOSIS
     Dosage: 200 MG, QD, DURING 3 YEARS
     Route: 065
     Dates: start: 199706, end: 200005

REACTIONS (1)
  - Bone hyperpigmentation [Unknown]
